FAERS Safety Report 6235829-0 (Version None)
Quarter: 2009Q2

REPORT INFORMATION
  Report Type: 
  Country: None (occurrence: None)
  Receive Date: 20090619
  Receipt Date: 20090609
  Transmission Date: 20091009
  Serious: Yes (Hospitalization)
  Sender: FDA-Public Use
  Company Number: JP-CELGENEUS-087-CCAZA-09051109

PATIENT
  Sex: Male

DRUGS (4)
  1. VIDAZA [Suspect]
     Route: 058
     Dates: start: 20090508, end: 20090513
  2. CEFDINIR [Concomitant]
     Indication: RASH
     Route: 048
     Dates: start: 20090513
  3. VORICONAZOLE [Concomitant]
     Indication: PNEUMONIA
     Route: 051
     Dates: start: 20090518, end: 20090521
  4. VORICONAZOLE [Concomitant]

REACTIONS (2)
  - ENTEROCOLITIS [None]
  - PYREXIA [None]
